FAERS Safety Report 10146950 (Version 1)
Quarter: 2014Q2

REPORT INFORMATION
  Report Type: Spontaneous
  Country: US (occurrence: US)
  Receive Date: 20140501
  Receipt Date: 20140501
  Transmission Date: 20141212
  Serious: Yes (Hospitalization)
  Sender: FDA-Public Use
  Company Number: US-GLAXOSMITHKLINE-A1070643A

PATIENT
  Age: 63 Year
  Sex: Female

DRUGS (4)
  1. ADVAIR HFA [Suspect]
     Indication: CHRONIC OBSTRUCTIVE PULMONARY DISEASE
     Dosage: 1PUFF TWICE PER DAY
     Route: 055
     Dates: start: 201106
  2. VENTOLIN [Suspect]
     Indication: ASTHMA
     Route: 055
     Dates: start: 201106
  3. DILTIAZEM [Concomitant]
  4. DIGOXIN [Concomitant]

REACTIONS (2)
  - Chronic obstructive pulmonary disease [Recovering/Resolving]
  - Dyspnoea [Recovering/Resolving]
